FAERS Safety Report 13272820 (Version 1)
Quarter: 2017Q1

REPORT INFORMATION
  Report Type: Spontaneous
  Country: US (occurrence: US)
  Receive Date: 20170227
  Receipt Date: 20170227
  Transmission Date: 20170428
  Serious: No
  Sender: FDA-Public Use
  Company Number: US-TAKEDA-2017TUS004015

PATIENT
  Age: 3 Month
  Sex: Male

DRUGS (1)
  1. PREVACID SOLUTAB [Suspect]
     Active Substance: LANSOPRAZOLE
     Indication: GASTROOESOPHAGEAL REFLUX DISEASE
     Dosage: UNK UNK, BID
     Route: 048
     Dates: start: 201701

REACTIONS (3)
  - Drug administered to patient of inappropriate age [Not Recovered/Not Resolved]
  - Milk allergy [Not Recovered/Not Resolved]
  - Wrong technique in product usage process [Not Recovered/Not Resolved]
